FAERS Safety Report 23576901 (Version 2)
Quarter: 2024Q3

REPORT INFORMATION
  Report Type: Report from Study
  Country: US (occurrence: US)
  Receive Date: 20240228
  Receipt Date: 20240715
  Transmission Date: 20241017
  Serious: No
  Sender: MYLAN
  Company Number: US-MYLANLABS-2024M1017911

PATIENT
  Sex: Male

DRUGS (8)
  1. EPLERENONE [Interacting]
     Active Substance: EPLERENONE
     Indication: Product used for unknown indication
     Dosage: 50 MILLIGRAM
     Route: 065
  2. VYNDAMAX [Suspect]
     Active Substance: TAFAMIDIS
     Indication: Product used for unknown indication
     Dosage: 61 MILLIGRAM, QD (TAKE 1 CAPSULE BY MOUTH DAILY)
     Route: 048
  3. FUROSEMIDE [Suspect]
     Active Substance: FUROSEMIDE
     Indication: Product used for unknown indication
     Dosage: UNK
     Route: 065
  4. LISINOPRIL [Suspect]
     Active Substance: LISINOPRIL
     Indication: Product used for unknown indication
     Dosage: 40 MILLIGRAM
     Route: 065
  5. JARDIANCE [Suspect]
     Active Substance: EMPAGLIFLOZIN
     Indication: Product used for unknown indication
     Dosage: 25 MILLIGRAM
     Route: 065
  6. TORSEMIDE [Suspect]
     Active Substance: TORSEMIDE
     Indication: Product used for unknown indication
     Dosage: 20 MILLIGRAM
     Route: 065
  7. REPATHA [Suspect]
     Active Substance: EVOLOCUMAB
     Indication: Product used for unknown indication
     Dosage: UNK, Q2W (TAKES EVERY TWO WEEKS)
     Route: 065
  8. ASPIRIN [Suspect]
     Active Substance: ASPIRIN
     Indication: Product used for unknown indication
     Dosage: 325 MILLIGRAM
     Route: 065

REACTIONS (5)
  - Blood potassium increased [Unknown]
  - Rash pruritic [Unknown]
  - Cough [Unknown]
  - Fatigue [Unknown]
  - Drug interaction [Unknown]
